FAERS Safety Report 4297178-X (Version None)
Quarter: 2004Q1

REPORT INFORMATION
  Report Type: 
  Country: None (occurrence: None)
  Receive Date: 20040213
  Receipt Date: 20040206
  Transmission Date: 20041129
  Serious: Yes (Life-Threatening, Hospitalization, Other)
  Sender: FDA-Public Use
  Company Number: 2004-01-1588

PATIENT
  Age: 34 Year
  Sex: Male

DRUGS (6)
  1. PEG-INTRON [Suspect]
     Indication: HEPATITIS C
     Dosage: 80 MCG; SUBCUTANEOUS
     Route: 058
     Dates: start: 20031021, end: 20040202
  2. REBETOL [Suspect]
     Indication: HEPATITIS C
     Dosage: 1000 MG QD; ORAL
     Route: 048
     Dates: start: 20031021, end: 20040202
  3. MULTI-VITAMINS [Concomitant]
  4. MILK THISTLE FRUIT [Concomitant]
  5. VITAMIN C [Concomitant]
  6. AMBIEN [Concomitant]

REACTIONS (11)
  - BLOOD PRESSURE DECREASED [None]
  - CHOLECYSTITIS INFECTIVE [None]
  - HAEMATEMESIS [None]
  - HAEMATOCRIT DECREASED [None]
  - INTERNATIONAL NORMALISED RATIO DECREASED [None]
  - MALLORY-WEISS SYNDROME [None]
  - MELAENA [None]
  - PLATELET COUNT DECREASED [None]
  - PROTHROMBIN TIME PROLONGED [None]
  - PYREXIA [None]
  - SPLENOMEGALY [None]
